FAERS Safety Report 25342587 (Version 3)
Quarter: 2025Q4

REPORT INFORMATION
  Report Type: Spontaneous
  Country: US (occurrence: US)
  Receive Date: 20250521
  Receipt Date: 20251120
  Transmission Date: 20260118
  Serious: Yes (Hospitalization, Other)
  Sender: CATALYST PHARMA
  Company Number: US-CATALYST PHARMACEUTICALS-US-CATA-25-00608

PATIENT
  Age: 16 Year
  Sex: Male
  Weight: 86.168 kg

DRUGS (29)
  1. AGAMREE [Suspect]
     Active Substance: VAMOROLONE
     Indication: Duchenne muscular dystrophy
     Dosage: 7.5 ML DAILY
     Route: 048
     Dates: start: 20241211
  2. AGAMREE [Suspect]
     Active Substance: VAMOROLONE
     Dosage: 2 ML DAILY
     Route: 048
  3. AGAMREE [Suspect]
     Active Substance: VAMOROLONE
     Dosage: 3.5 ML DAILY
     Route: 048
     Dates: start: 20250207, end: 2025
  4. AGAMREE [Suspect]
     Active Substance: VAMOROLONE
     Dosage: 2 ML DAILY
     Route: 048
     Dates: start: 2025, end: 2025
  5. AGAMREE [Suspect]
     Active Substance: VAMOROLONE
     Dosage: 1.7 ML DAILY
     Route: 048
     Dates: start: 2025
  6. RISPERDAL [Concomitant]
     Active Substance: RISPERIDONE
     Indication: Anger
     Dosage: 0.5 MG DAILY
     Route: 048
     Dates: start: 20230919
  7. RISPERDAL [Concomitant]
     Active Substance: RISPERIDONE
     Indication: Mood swings
  8. NICOTINAMIDE RIBOSIDE CHLORIDE [Concomitant]
     Active Substance: NICOTINAMIDE RIBOSIDE CHLORIDE
     Indication: Antioxidant therapy
     Dosage: 115 MG TWICE DAILY
     Route: 065
  9. NAD+ [Concomitant]
     Indication: Antioxidant therapy
     Dosage: 100 MG TWICE WEEKLY
     Route: 058
  10. ZOLOFT [Concomitant]
     Active Substance: SERTRALINE HYDROCHLORIDE
     Indication: Anxiety
     Dosage: 25 MG DAILY
     Route: 048
     Dates: start: 20240301
  11. ZOLOFT [Concomitant]
     Active Substance: SERTRALINE HYDROCHLORIDE
     Indication: Depression
  12. RITALIN [Concomitant]
     Active Substance: METHYLPHENIDATE HYDROCHLORIDE
     Indication: Attention deficit hyperactivity disorder
     Dosage: 5 MG FROM MONDAY THROUGH FRIDAY
     Route: 048
  13. RITALIN [Concomitant]
     Active Substance: METHYLPHENIDATE HYDROCHLORIDE
     Dosage: 5 MG 2 TIMES A DAY, IN THE MORNING AND AFTERNOON
     Route: 048
     Dates: start: 20250507
  14. DUVYZAT [Concomitant]
     Active Substance: GIVINOSTAT
     Indication: Duchenne muscular dystrophy
     Dosage: 5 ML TWICE DAILY
     Route: 048
  15. MAGNESIUM L-THREONATE [Concomitant]
     Indication: Duchenne muscular dystrophy
     Dosage: 144 MG DAILY
     Route: 065
  16. SELENIUM [Concomitant]
     Active Substance: SELENIUM
     Indication: Duchenne muscular dystrophy
     Dosage: 100 MCG EVERY NIGHT
     Route: 048
  17. CREATINE [Concomitant]
     Active Substance: CREATINE
     Indication: Duchenne muscular dystrophy
     Dosage: 750 MG EVERY NIGHT
     Route: 065
  18. AMONDYS 45 [Concomitant]
     Active Substance: CASIMERSEN
     Indication: Duchenne muscular dystrophy
     Dosage: 100 MG PER 2ML WEEKLY
     Route: 042
  19. COENZYME Q10 [Concomitant]
     Active Substance: DIETARY SUPPLEMENT\UBIDECARENONE
     Indication: Cardiovascular event prophylaxis
     Dosage: 200 MG DAILY
     Route: 048
  20. OMEGA 3 [Concomitant]
     Active Substance: CAPSAICIN
     Indication: Cardiovascular event prophylaxis
     Dosage: 1000 MG DAILY
     Route: 048
  21. COZAAR [Concomitant]
     Active Substance: LOSARTAN POTASSIUM
     Indication: Cardiovascular event prophylaxis
     Dosage: 12.5 MG DAILY
     Route: 048
     Dates: start: 20241113
  22. VITAMIN C [Concomitant]
     Active Substance: ASCORBIC ACID
     Indication: Immune system disorder
     Dosage: 250 MG EVERY NIGHT
     Route: 048
  23. ATROVENT HFA [Concomitant]
     Active Substance: IPRATROPIUM BROMIDE
     Indication: Pulmonary function test
     Dosage: 17 MCG-ACT TWICE DAILY (INHALE 2 PUFFS)
     Route: 055
     Dates: start: 20250416
  24. VITAMIN D3+K2 [Concomitant]
     Indication: Osteoporosis
     Dosage: 2000 UNITS EVERY NIGHT
     Route: 065
  25. ZOLEDRONIC ACID [Concomitant]
     Active Substance: ZOLEDRONIC ACID
     Indication: Osteoporosis
     Dosage: 4 MG PER 100 ML EVERY SIX MONTHS
     Route: 042
  26. PRILOSEC [Concomitant]
     Active Substance: OMEPRAZOLE MAGNESIUM
     Indication: Gastrointestinal disorder prophylaxis
     Dosage: 40 MG DAILY
     Route: 048
     Dates: start: 20240703
  27. TADALAFIL [Concomitant]
     Active Substance: TADALAFIL
     Indication: Muscle strength normal
     Dosage: 10 MG DAILY
     Route: 048
  28. VITAMINS [Concomitant]
     Active Substance: VITAMINS
     Indication: Hypovitaminosis
     Dosage: ONE TABLET DAILY
     Route: 048
  29. VITAMIN E [Concomitant]
     Active Substance: .ALPHA.-TOCOPHEROL
     Indication: Hypovitaminosis
     Dosage: ONE UNIT EVERY NIGHT
     Route: 048

REACTIONS (3)
  - Pneumonia viral [Unknown]
  - Respiratory tract infection [Not Recovered/Not Resolved]
  - Intentional product use issue [Unknown]

NARRATIVE: CASE EVENT DATE: 20241201
